FAERS Safety Report 23352712 (Version 1)
Quarter: 2023Q4

REPORT INFORMATION
  Report Type: Spontaneous
  Country: GB (occurrence: GB)
  Receive Date: 20231230
  Receipt Date: 20231230
  Transmission Date: 20240109
  Serious: Yes (Other)
  Sender: FDA-Public Use
  Company Number: GB-CLINIGEN-GB-CLI-2023-031133

PATIENT
  Age: 45 Year
  Weight: 63.8 kg

DRUGS (59)
  1. FLUDARABINE [Suspect]
     Active Substance: FLUDARABINE PHOSPHATE
     Indication: Neoplasm
     Dosage: 43 MG, QD
     Route: 065
     Dates: start: 20230907, end: 20230911
  2. FLUDARABINE [Suspect]
     Active Substance: FLUDARABINE PHOSPHATE
     Indication: Neoplasm
     Dosage: 43 MG, QD
     Route: 065
     Dates: start: 20230910, end: 20230911
  3. MAGNESIUM SULFATE [Concomitant]
     Active Substance: MAGNESIUM SULFATE\MAGNESIUM SULFATE HEPTAHYDRATE
     Indication: Fluid replacement
     Dosage: 20 MMOL
     Dates: start: 20230914, end: 20230914
  4. LEVOMEPROMAZINE [Concomitant]
     Active Substance: LEVOMEPROMAZINE
     Indication: Nausea
     Dosage: 3.125 MG, PRN; AS NECESSARY
     Dates: start: 20230906
  5. FILGRASTIM [Concomitant]
     Active Substance: FILGRASTIM
     Indication: Neutrophil count decreased
     Dosage: 300 UG, QD
     Dates: start: 20230914, end: 20230915
  6. MENTHOL [Concomitant]
     Active Substance: MENTHOL
     Indication: Rash
     Dosage: SACHET, PRN; AS NECESSARY;
     Dates: start: 20230916
  7. MENTHOL [Concomitant]
     Active Substance: MENTHOL
     Indication: Rash
     Dosage: EVERY 6 HOURS, PRN; AS NECESSARY;
     Dates: start: 20230915
  8. ACYCLOVIR [Concomitant]
     Active Substance: ACYCLOVIR
     Indication: Antiviral prophylaxis
     Dosage: 3600 MG, QD (UNK, TID)
     Dates: start: 20230905
  9. SODIUM LACTATE [Concomitant]
     Active Substance: SODIUM LACTATE
     Indication: Fluid replacement
     Dosage: 1000 ML,  CONTINUOUS INFUSION
     Dates: start: 20230918, end: 20230919
  10. SODIUM LACTATE [Concomitant]
     Active Substance: SODIUM LACTATE
     Indication: Fluid replacement
     Dosage: 250 ML, ONCE ONLY
     Dates: start: 20230914, end: 20230914
  11. SODIUM LACTATE [Concomitant]
     Active Substance: SODIUM LACTATE
     Indication: Fluid replacement
     Dosage: 1000 ML, CONTINUOUS INFUSION
     Dates: start: 20230915, end: 20230915
  12. BETNOVATE [Concomitant]
     Active Substance: BETAMETHASONE
     Indication: Rash
     Dosage: TWICE A DAYS, AS PER NEED; AS NECESSARY;
     Dates: start: 20230914, end: 20230919
  13. BETNOVATE [Concomitant]
     Active Substance: BETAMETHASONE
     Indication: Rash
     Dosage: UNK, PRN,  AS NECESSARY
     Dates: start: 20230920
  14. CLOTRIMAZOLE [Concomitant]
     Active Substance: CLOTRIMAZOLE
     Indication: Rash
     Dosage: BID
     Dates: start: 20230917
  15. FLUCONAZOLE [Concomitant]
     Active Substance: FLUCONAZOLE
     Indication: Antiviral prophylaxis
     Dosage: 200 MG, QD
     Dates: start: 20230915
  16. PROLEUKIN [Suspect]
     Active Substance: ALDESLEUKIN
     Indication: Neoplasm
     Dosage: 39.6 MILION UNITS, BID
     Route: 065
     Dates: start: 20230913, end: 20230915
  17. ONDANSETRON [Concomitant]
     Active Substance: ONDANSETRON
     Indication: Nausea
     Dosage: 8 MG, PRN (AS NECESSARY)
     Dates: start: 20230912, end: 20230915
  18. ONDANSETRON [Concomitant]
     Active Substance: ONDANSETRON
     Indication: Nausea
     Dosage: 8 MG, Q8H
     Dates: start: 20230908, end: 20230912
  19. COTRIMOXAZOLE [Concomitant]
     Active Substance: SULFAMETHOXAZOLE\TRIMETHOPRIM
     Indication: Antibiotic prophylaxis
     Dosage: 2880MG, QD(480 MG, TWICE A DAY ON MON, WED, FRI)
     Dates: start: 20230906
  20. TAUROLIDINE [Concomitant]
     Active Substance: TAUROLIDINE
     Indication: Central venous catheterisation
     Dosage: 10000 UNITS, AS NEEDED, VIA CENTRAL VENOUS ACCESS DEVICES; ;
     Dates: start: 20230912
  21. POLYETHYLENE GLYCOLS [Concomitant]
     Active Substance: POLYETHYLENE GLYCOLS
     Indication: Constipation
     Dosage: 1 SACHET EVERY 12H PER NEED; AS NECESSARY;
     Dates: start: 20230911
  22. POLYETHYLENE GLYCOLS [Concomitant]
     Active Substance: POLYETHYLENE GLYCOLS
     Indication: Constipation
     Dosage: 1 DOSAGE FORM, PRN, EVERY 12H (1 SACHET EVERY 12H PER NEED; AS NECESSARY;)
     Dates: start: 20230911
  23. CALCIUM CARBONATE [Concomitant]
     Active Substance: CALCIUM CARBONATE
     Indication: Vitamin supplementation
     Dosage: 4 DF, QD (2 DF, BID)
     Dates: start: 20230907
  24. SANDO-K [Concomitant]
     Indication: Blood potassium decreased
     Dosage: 4 DF, QD (2 DF, BID)
     Dates: start: 20230914, end: 20230914
  25. MEPERIDINE [Concomitant]
     Active Substance: MEPERIDINE
     Indication: Chills
     Dosage: 25-50 MG EVERY 4 HOURS IF NEEDED; AS NECESSARY;
     Dates: start: 20230913
  26. BENZYDAMINE [Concomitant]
     Active Substance: BENZYDAMINE
     Indication: Oropharyngeal pain
     Dosage: (SWISH + SPIT), PRN (AS NECESSARY;)
     Dates: start: 20230909
  27. CAPSAICIN [Concomitant]
     Active Substance: CAPSAICIN
     Indication: Rash
     Dosage: SACHET, PRN; AS NECESSARY
     Dates: start: 20230916
  28. FAMOTIDINE [Concomitant]
     Active Substance: FAMOTIDINE
     Indication: Reflux gastritis
     Dosage: 20 MG, BID
     Dates: start: 20230909
  29. ACETAMINOPHEN [Concomitant]
     Active Substance: ACETAMINOPHEN
     Indication: Headache
     Dosage: 1000 MG PRN EVERY 6 HOURS; AS NECESSARY
     Dates: start: 20230906, end: 20230914
  30. ACETAMINOPHEN [Concomitant]
     Active Substance: ACETAMINOPHEN
     Indication: Headache
     Dosage: 1 G, PRN (EVERY 6 HOURS; AS NECESSARY)
     Dates: start: 20230914
  31. POTASSIUM CHLORIDE [Concomitant]
     Active Substance: POTASSIUM CHLORIDE
     Indication: Fluid replacement
     Dosage: 1000 ML,  CONTINUOUS INFUSION;
     Dates: start: 20230918, end: 20230919
  32. POTASSIUM CHLORIDE [Concomitant]
     Active Substance: POTASSIUM CHLORIDE
     Indication: Fluid replacement
     Dosage: 1000 ML AT ONCE
     Dates: start: 20230912, end: 20230912
  33. POTASSIUM CHLORIDE [Concomitant]
     Active Substance: POTASSIUM CHLORIDE
     Indication: Fluid replacement
     Dosage: 250 ML, QD (1000 ML AT ONCE OVER 6 HOURS
     Dates: start: 20230914, end: 20230914
  34. POTASSIUM CHLORIDE [Concomitant]
     Active Substance: POTASSIUM CHLORIDE
     Indication: Fluid replacement
     Dosage: 1000 M, Q6H (ONCE OVER 6 HOURS)
     Dates: start: 20230914, end: 20230914
  35. POTASSIUM CHLORIDE [Concomitant]
     Active Substance: POTASSIUM CHLORIDE
     Indication: Fluid replacement
     Dosage: 1000 ML, CONTINUOUS INFUSION;
     Dates: start: 20230915, end: 20230915
  36. ISOPROPYL MYRISTATE\MINERAL OIL [Concomitant]
     Active Substance: ISOPROPYL MYRISTATE\MINERAL OIL
     Indication: Rash
     Dosage: UNK, PRN; AS NECESSARY
     Dates: start: 20230919
  37. CHLORPHENIRAMINE MALEATE [Concomitant]
     Active Substance: CHLORPHENIRAMINE MALEATE
     Indication: Hypersensitivity
     Dosage: 10 MG, PRN, INJECTION; AS NECESSARY
     Dates: start: 20230912
  38. CHLORPHENIRAMINE MALEATE [Concomitant]
     Active Substance: CHLORPHENIRAMINE MALEATE
     Indication: Hypersensitivity
     Dosage: 4 MG, PRN, TABLET; AS NECESSARY
     Dates: start: 20230917, end: 20230917
  39. CHLORPHENIRAMINE MALEATE [Concomitant]
     Active Substance: CHLORPHENIRAMINE MALEATE
     Indication: Hypersensitivity
     Dosage: 10 MG, PRN, INJECTION; AS NECESSARY
     Dates: start: 20230912
  40. CHLORPHENIRAMINE MALEATE [Concomitant]
     Active Substance: CHLORPHENIRAMINE MALEATE
     Indication: Hypersensitivity
     Dosage: 5 MG
     Dates: start: 20230916, end: 20230917
  41. SODIUM CHLORIDE [Concomitant]
     Active Substance: SODIUM CHLORIDE
     Indication: Fluid replacement
     Dosage: 1000 ML, QD (1000 ML AT ONCE)
     Dates: start: 20230913, end: 20230913
  42. PEMBROLIZUMAB [Suspect]
     Active Substance: PEMBROLIZUMAB
     Indication: Neoplasm
     Dosage: 400 MG
     Route: 065
     Dates: start: 20231025
  43. PEMBROLIZUMAB [Suspect]
     Active Substance: PEMBROLIZUMAB
     Indication: Neoplasm
     Dosage: 400 MG, ONCE IN 6 WEEKS;
     Route: 065
     Dates: start: 20230816
  44. TINZAPARIN [Concomitant]
     Active Substance: TINZAPARIN
     Indication: Prophylaxis
     Dosage: 4500 UNITS, QD
     Dates: start: 20230918
  45. PIPERACILLIN AND TAZOBACTAM [Concomitant]
     Active Substance: PIPERACILLIN SODIUM\TAZOBACTAM SODIUM
     Indication: Sepsis
     Dosage: 4.5 GRAM, Q6H
     Dates: start: 20230914, end: 20230919
  46. CALCIUM CHLORIDE [Concomitant]
     Active Substance: CALCIUM CHLORIDE
     Indication: Fluid replacement
     Dosage: 1000 ML, CONTINUOUS INFUSION
     Dates: start: 20230915, end: 20230915
  47. CALCIUM CHLORIDE [Concomitant]
     Active Substance: CALCIUM CHLORIDE
     Indication: Fluid replacement
     Dosage: 250 ML, QD
     Dates: start: 20230914, end: 20230914
  48. CALCIUM CHLORIDE [Concomitant]
     Active Substance: CALCIUM CHLORIDE
     Indication: Fluid replacement
     Dosage: 1000 ML,  CONTINUOUS INFUSION
     Dates: start: 20230918, end: 20230919
  49. SUCRALFATE [Concomitant]
     Active Substance: SUCRALFATE
     Indication: Reflux gastritis
     Dosage: 1 GRAM, PRN EVERY 6 HOURS, ORAL SUSPENSION; AS NECESSARY
     Dates: start: 20230911
  50. DISODIUM HYDROGEN CITRATE [Concomitant]
     Active Substance: DISODIUM HYDROGEN CITRATE
     Indication: Central venous catheterisation
     Dosage: 10000 UNITS, AS NEEDED, VIA CENTRAL VENOUS ACCESS DEVICES; ;
     Dates: start: 20230912
  51. MEDIDERM [Concomitant]
     Indication: Rash
     Dosage: SACHET, PRN; AS NECESSARY
     Dates: start: 20230916
  52. AMIKACIN [Concomitant]
     Active Substance: AMIKACIN
     Indication: Sepsis
     Dosage: 15 MILLIGRAM/KILOGRAM, ONLY ONCE;
     Dates: start: 20230914, end: 20230914
  53. ZOPICLONE [Concomitant]
     Active Substance: ZOPICLONE
     Indication: Insomnia
     Dosage: 3.75 MG, PRN AT NIGHT; AS NECESSARY
     Dates: start: 20230917, end: 20230918
  54. CYCLOPHOSPHAMIDE [Suspect]
     Active Substance: CYCLOPHOSPHAMIDE
     Indication: Neoplasm
     Dosage: 4044 MG, QD
     Route: 065
     Dates: start: 20230905, end: 20230909
  55. LIGHT LIQUID PARAFFIN [Concomitant]
     Indication: Rash
     Dosage: FOR SHOWERING; AS NECESSARY;
  56. ALDESLEUKIN [Suspect]
     Active Substance: ALDESLEUKIN
     Indication: Neoplasm
     Dosage: 39.6 UNK, BID
     Route: 065
     Dates: start: 20230913, end: 20230915
  57. METHYL SALICYLATE [Concomitant]
     Active Substance: METHYL SALICYLATE
     Indication: Rash
     Dosage: SACHET, PRN; AS NECESSARY;
     Dates: start: 20230916
  58. ADCAL [Concomitant]
     Indication: Vitamin supplementation
     Dosage: 2 DF(1 DOSAGE FORM, BID)
     Dates: start: 20230907
  59. BETAMETHASONE VALERATE [Concomitant]
     Active Substance: BETAMETHASONE VALERATE
     Indication: Rash
     Dosage: QD
     Dates: start: 20230919

REACTIONS (1)
  - Uveitis [Not Recovered/Not Resolved]

NARRATIVE: CASE EVENT DATE: 20230919
